FAERS Safety Report 6098285-1 (Version None)
Quarter: 2009Q1

REPORT INFORMATION
  Report Type: 
  Country: None (occurrence: None)
  Receive Date: 20090227
  Receipt Date: 20090220
  Transmission Date: 20090719
  Serious: Yes (Hospitalization)
  Sender: FDA-Public Use
  Company Number: US-GENENTECH-277885

PATIENT
  Sex: Female
  Weight: 87.075 kg

DRUGS (14)
  1. XOLAIR [Suspect]
     Indication: ASTHMA
     Dosage: UNK
     Route: 058
     Dates: start: 20080701
  2. SINGULAIR [Suspect]
     Indication: DRUG USE FOR UNKNOWN INDICATION
  3. ADVAIR HFA [Concomitant]
     Indication: DRUG USE FOR UNKNOWN INDICATION
  4. SYNTHROID [Concomitant]
     Indication: DRUG USE FOR UNKNOWN INDICATION
  5. CRESTOR [Concomitant]
     Indication: DRUG USE FOR UNKNOWN INDICATION
  6. TOPAMAX [Concomitant]
     Indication: DRUG USE FOR UNKNOWN INDICATION
  7. THEO-DUR [Concomitant]
     Indication: DRUG USE FOR UNKNOWN INDICATION
  8. ATROVENT [Concomitant]
     Indication: DRUG USE FOR UNKNOWN INDICATION
  9. SYMBICORT [Concomitant]
     Indication: DRUG USE FOR UNKNOWN INDICATION
  10. PREDNISONE [Concomitant]
     Indication: DRUG USE FOR UNKNOWN INDICATION
  11. PROTONIX [Concomitant]
     Indication: DRUG USE FOR UNKNOWN INDICATION
  12. HYDROCODONE COUGH SYRUP [Concomitant]
     Indication: DRUG USE FOR UNKNOWN INDICATION
  13. ZITHROMAX [Concomitant]
     Indication: DRUG USE FOR UNKNOWN INDICATION
  14. GLUCOTROL [Concomitant]
     Indication: DRUG USE FOR UNKNOWN INDICATION

REACTIONS (1)
  - PNEUMONIA [None]
